FAERS Safety Report 5009978-9 (Version None)
Quarter: 2006Q2

REPORT INFORMATION
  Report Type: 
  Country: None (occurrence: None)
  Receive Date: 20060522
  Receipt Date: 20060508
  Transmission Date: 20061013
  Serious: Yes (Other)
  Sender: FDA-Public Use
  Company Number: 200610424BNE

PATIENT
  Age: 56 Year
  Sex: Female
  Weight: 68.0396 kg

DRUGS (8)
  1. CIPROFLOXACIN [Suspect]
     Indication: KIDNEY INFECTION
     Dosage: SEE IMAGE
     Dates: start: 20060321, end: 20060329
  2. CIPROFLOXACIN [Suspect]
     Indication: KIDNEY INFECTION
     Dosage: SEE IMAGE
     Dates: start: 20060405
  3. LISINOPRIL [Concomitant]
  4. THYROXIN [Concomitant]
  5. GLICLAZIDE [Concomitant]
  6. METFORMIN [Concomitant]
  7. ROSUVASTATIN [Concomitant]
  8. PREMIQUE [Concomitant]

REACTIONS (12)
  - CHROMATURIA [None]
  - CONSTIPATION [None]
  - FAECES PALE [None]
  - HEPATOMEGALY [None]
  - JAUNDICE [None]
  - LIVER FUNCTION TEST ABNORMAL [None]
  - OCULAR ICTERUS [None]
  - ORAL CANDIDIASIS [None]
  - POLLAKIURIA [None]
  - URTICARIA GENERALISED [None]
  - VAGINAL CANDIDIASIS [None]
  - VOMITING [None]
